FAERS Safety Report 25369814 (Version 1)
Quarter: 2025Q2

REPORT INFORMATION
  Report Type: Spontaneous
  Country: US (occurrence: US)
  Receive Date: 20250528
  Receipt Date: 20250528
  Transmission Date: 20250717
  Serious: No
  Sender: CIPLA
  Company Number: US-CIPLA LTD.-2024US06007

PATIENT

DRUGS (9)
  1. ALBUTEROL [Suspect]
     Active Substance: ALBUTEROL
     Indication: Dyspnoea
     Dates: start: 202403
  2. ALBUTEROL [Suspect]
     Active Substance: ALBUTEROL
     Dates: start: 202405
  3. LOSARTAN [Concomitant]
     Active Substance: LOSARTAN
     Indication: Blood pressure abnormal
     Dosage: 25 MILLIGRAM, QD (FEW YEARS AGO)
     Route: 065
  4. TAMSULOSIN [Concomitant]
     Active Substance: TAMSULOSIN
     Indication: Mood swings
     Dosage: 1 DOSAGE FORM, QD (LOWER STRENGTH/1 TABLET IN A DAY)
     Route: 065
  5. LEVOTHYROXINE [Concomitant]
     Active Substance: LEVOTHYROXINE
     Indication: Hypothyroidism
     Dosage: 1 DOSAGE FORM, QD ((LOWER DOSE)/1 TABLET IN A DAY)
     Route: 065
     Dates: start: 2021
  6. ASPIRIN [Concomitant]
     Active Substance: ASPIRIN
     Indication: Anticoagulant therapy
     Dosage: 81 MILLIGRAM, QD (1 TABLET IN A DAY)
     Route: 065
     Dates: start: 2017
  7. PROVIGIL [Concomitant]
     Active Substance: MODAFINIL
     Indication: Narcolepsy
     Dosage: 200 MILLIGRAM, QD (1 TABLET IN A DAY)
     Route: 065
     Dates: start: 2022
  8. METOPROLOL [Concomitant]
     Active Substance: METOPROLOL
     Indication: Cardiac disorder
     Dosage: 1 DOSAGE FORM, QD ((NOT SURE)/1 TABLET IN A DAY)
     Route: 065
     Dates: start: 2021
  9. IBUPROFEN [Concomitant]
     Active Substance: IBUPROFEN
     Indication: Product used for unknown indication
     Route: 065

REACTIONS (2)
  - Dyspnoea [Recovered/Resolved]
  - Device delivery system issue [Unknown]

NARRATIVE: CASE EVENT DATE: 20240101
